FAERS Safety Report 5603475-5 (Version None)
Quarter: 2008Q1

REPORT INFORMATION
  Report Type: 
  Country: None (occurrence: None)
  Receive Date: 20080123
  Receipt Date: 20080111
  Transmission Date: 20080703
  Serious: Yes (Hospitalization)
  Sender: FDA-Public Use
  Company Number: S07-USA-06184-01

PATIENT
  Age: 15 Year
  Sex: Female

DRUGS (8)
  1. CELEXA [Suspect]
     Indication: BIPOLAR DISORDER
     Dosage: 40 MG QD PO
     Route: 048
     Dates: start: 20070102, end: 20071104
  2. CELEXA [Suspect]
     Indication: BIPOLAR DISORDER
     Dosage: 20 MG QD PO
     Route: 048
     Dates: start: 20071105, end: 20071111
  3. CELEXA [Suspect]
     Indication: BIPOLAR DISORDER
     Dosage: 10 MG QD PO
     Route: 048
     Dates: start: 20071112, end: 20071118
  4. XANAX [Concomitant]
  5. VICODIN [Concomitant]
  6. ALBUTEROL [Concomitant]
  7. ADVAIR DISKUS 100/50 [Concomitant]
  8. TRAZODONE HCL [Concomitant]

REACTIONS (7)
  - AGGRESSION [None]
  - BIPOLAR DISORDER [None]
  - CONDITION AGGRAVATED [None]
  - ILL-DEFINED DISORDER [None]
  - INTENTIONAL SELF-INJURY [None]
  - LACERATION [None]
  - MOOD SWINGS [None]
